FAERS Safety Report 9264181 (Version 4)
Quarter: 2014Q1

REPORT INFORMATION
  Report Type: Spontaneous
  Country: DK (occurrence: DK)
  Receive Date: 20130430
  Receipt Date: 20140213
  Transmission Date: 20141002
  Serious: Yes (Hospitalization)
  Sender: FDA-Public Use
  Company Number: DK-PFIZER INC-2013130778

PATIENT
  Age: 1 Day
  Sex: Female
  Weight: 2.6 kg

DRUGS (1)
  1. CYTOTEC [Suspect]
     Indication: LABOUR INDUCTION
     Dosage: 25 UG, 3X/DAY
     Route: 064
     Dates: start: 20060830, end: 20060831

REACTIONS (10)
  - Maternal exposure timing unspecified [Unknown]
  - Heart sounds abnormal [Recovered/Resolved]
  - Apgar score low [Recovered/Resolved]
  - Benign congenital hypotonia [Unknown]
  - Convulsion [Unknown]
  - Epilepsy [Not Recovered/Not Resolved]
  - Mild mental retardation [Not Recovered/Not Resolved]
  - Attention deficit/hyperactivity disorder [Not Recovered/Not Resolved]
  - Autism [Not Recovered/Not Resolved]
  - Psychomotor retardation [Not Recovered/Not Resolved]
